FAERS Safety Report 8487465-3 (Version None)
Quarter: 2012Q3

REPORT INFORMATION
  Report Type: 
  Country: None (occurrence: None)
  Receive Date: 20120705
  Receipt Date: 20120629
  Transmission Date: 20120928
  Serious: Yes (Other)
  Sender: FDA-Public Use
  Company Number: US-BAYER-2012-065532

PATIENT
  Sex: Female

DRUGS (1)
  1. MIRENA [Suspect]
     Dosage: 20 MCG/24HR, CONT
     Route: 015
     Dates: start: 20120316, end: 20120529

REACTIONS (5)
  - DEPRESSION [None]
  - VAGINAL HAEMORRHAGE [None]
  - BREAST PAIN [None]
  - HYPERSOMNIA [None]
  - FEELING ABNORMAL [None]
